FAERS Safety Report 4504139-1 (Version None)
Quarter: 2004Q4

REPORT INFORMATION
  Report Type: 
  Country: None (occurrence: None)
  Receive Date: 20041116
  Receipt Date: 20041116
  Transmission Date: 20050328
  Serious: Yes (Life-Threatening, Hospitalization)
  Sender: FDA-Public Use
  Company Number: None

PATIENT
  Age: 77 Year
  Sex: Male
  Weight: 71.4 kg

DRUGS (1)
  1. DIPYRIDAMOLE [Suspect]

REACTIONS (2)
  - BRONCHOSPASM [None]
  - CARDIO-RESPIRATORY ARREST [None]
